FAERS Safety Report 9507222 (Version 2)
Quarter: 2013Q3

REPORT INFORMATION
  Report Type: Spontaneous
  Country: ES (occurrence: ES)
  Receive Date: 20130909
  Receipt Date: 20130927
  Transmission Date: 20140515
  Serious: Yes (Hospitalization, Other)
  Sender: FDA-Public Use
  Company Number: PHHY2013ES097885

PATIENT
  Age: 67 Year
  Sex: Male

DRUGS (2)
  1. TASIGNA [Suspect]
     Indication: CHRONIC MYELOID LEUKAEMIA
     Dosage: 300 MG, Q12H
     Route: 048
     Dates: start: 20121222, end: 20130520
  2. ADIRO [Concomitant]
     Indication: ISCHAEMIA
     Dosage: 100 MG, QD
     Dates: start: 201201

REACTIONS (5)
  - Angina unstable [Recovered/Resolved]
  - Chest pain [Recovered/Resolved]
  - Ventricular hypokinesia [Recovered/Resolved]
  - Ventricular dysfunction [Recovered/Resolved]
  - Blood pressure systolic increased [Unknown]
